FAERS Safety Report 26190360 (Version 1)
Quarter: 2025Q4

REPORT INFORMATION
  Report Type: Report from Study
  Country: EU (occurrence: EU)
  Receive Date: 20251223
  Receipt Date: 20251223
  Transmission Date: 20260118
  Serious: Yes (Other)
  Sender: ROCHE
  Company Number: EU-ROCHE-10000461484

PATIENT

DRUGS (4)
  1. VEMURAFENIB [Suspect]
     Active Substance: VEMURAFENIB
     Indication: Erdheim-Chester disease
  2. VEMURAFENIB [Suspect]
     Active Substance: VEMURAFENIB
  3. DABRAFENIB [Suspect]
     Active Substance: DABRAFENIB
     Indication: Erdheim-Chester disease
  4. ENCORAFENIB [Suspect]
     Active Substance: ENCORAFENIB
     Indication: Erdheim-Chester disease

REACTIONS (41)
  - Photosensitivity reaction [Unknown]
  - Rash [Unknown]
  - Hyperkeratosis [Unknown]
  - Alopecia [Unknown]
  - Drug reaction with eosinophilia and systemic symptoms [Unknown]
  - Ill-defined disorder [Unknown]
  - Skin lesion [Unknown]
  - Peyronie^s disease [Unknown]
  - Granuloma skin [Unknown]
  - Palmar-plantar erythrodysaesthesia syndrome [Unknown]
  - Pruritus [Unknown]
  - Dermatitis exfoliative generalised [Unknown]
  - Papilloma [Unknown]
  - Arthralgia [Unknown]
  - Myalgia [Unknown]
  - Arthritis [Unknown]
  - Fatigue [Unknown]
  - Tendonitis [Unknown]
  - Bone pain [Unknown]
  - Pancreatitis [Unknown]
  - Nausea [Unknown]
  - Diarrhoea [Unknown]
  - Lipase increased [Unknown]
  - Constipation [Unknown]
  - Malignant melanoma [Unknown]
  - Skin cancer [Unknown]
  - Colon cancer [Unknown]
  - Hepatobiliary disease [Unknown]
  - Hepatic cytolysis [Unknown]
  - Hypertriglyceridaemia [Unknown]
  - Hepatitis acute [Unknown]
  - Electrocardiogram QT prolonged [Unknown]
  - Hypertension [Unknown]
  - Pericarditis [Unknown]
  - Blood creatinine increased [Unknown]
  - Acute kidney injury [Unknown]
  - Urinary tract infection [Unknown]
  - Neuropathy peripheral [Unknown]
  - Dysgeusia [Unknown]
  - Dry eye [Unknown]
  - Uveitis [Unknown]
